FAERS Safety Report 4552243-4 (Version None)
Quarter: 2005Q1

REPORT INFORMATION
  Report Type: 
  Country: None (occurrence: None)
  Receive Date: 20041217
  Receipt Date: 20041015
  Transmission Date: 20050727
  Serious: No
  Sender: FDA-Public Use
  Company Number: 2004-BP-10039BP

PATIENT
  Age: 70 Year
  Sex: Female

DRUGS (5)
  1. SPIRIVA [Suspect]
     Dosage: 18 MCG (18 MCG), IH
     Route: 056
     Dates: start: 20040519
  2. PLAVIX (CLOPINDOGREL SULFATE) [Concomitant]
  3. PREVACID [Concomitant]
  4. ZOCOR [Concomitant]
  5. ZERTEC [Concomitant]

REACTIONS (1)
  - RASH PRURITIC [None]
